FAERS Safety Report 9537129 (Version 1)
Quarter: 2013Q3

REPORT INFORMATION
  Report Type: Spontaneous
  Country: GB (occurrence: GB)
  Receive Date: 20130919
  Receipt Date: 20130919
  Transmission Date: 20140515
  Serious: Yes (Other)
  Sender: FDA-Public Use
  Company Number: GB-JNJFOC-20130909809

PATIENT
  Age: 76 Year
  Sex: Female
  Weight: 49 kg

DRUGS (11)
  1. XARELTO [Suspect]
     Indication: ISCHAEMIC CEREBRAL INFARCTION
     Route: 048
     Dates: start: 201302, end: 201308
  2. PARACETAMOL [Concomitant]
     Route: 065
  3. BISOPROLOL [Concomitant]
     Route: 065
  4. CALCICHEW D3 [Concomitant]
     Route: 065
  5. VENTOLIN [Concomitant]
     Route: 065
  6. LOSARTAN [Concomitant]
     Route: 065
  7. NICORANDIL [Concomitant]
     Route: 065
  8. TIOTROPIUM BROMIDE [Concomitant]
     Route: 065
  9. ALENDRONIC ACID [Concomitant]
     Route: 065
  10. SALMETEROL [Concomitant]
     Route: 065
  11. DOXYCYCLINE [Concomitant]
     Route: 065

REACTIONS (3)
  - Skin exfoliation [Recovering/Resolving]
  - Skin necrosis [Recovering/Resolving]
  - Vasculitic rash [Recovering/Resolving]
